FAERS Safety Report 10240663 (Version 1)
Quarter: 2014Q2

REPORT INFORMATION
  Report Type: Report from Study
  Country: CA (occurrence: CA)
  Receive Date: 20140617
  Receipt Date: 20140617
  Transmission Date: 20141212
  Serious: Yes (Other)
  Sender: FDA-Public Use
  Company Number: CA-ABBVIE-14P-028-1246476-00

PATIENT
  Sex: Male

DRUGS (1)
  1. LUPRON DEPOT [Suspect]
     Indication: PROSTATE CANCER
     Route: 030
     Dates: start: 2013, end: 201403

REACTIONS (11)
  - Surgery [Unknown]
  - Tumour flare [Unknown]
  - Neoplasm malignant [Unknown]
  - Blood pressure increased [Unknown]
  - Anxiety [Unknown]
  - Heart rate irregular [Unknown]
  - Pain [Unknown]
  - Back disorder [Unknown]
  - Insomnia [Unknown]
  - Hyperhidrosis [Unknown]
  - Urinary incontinence [Unknown]
